FAERS Safety Report 18065607 (Version 1)
Quarter: 2020Q3

REPORT INFORMATION
  Report Type: Spontaneous
  Country: FR (occurrence: FR)
  Receive Date: 20200724
  Receipt Date: 20200724
  Transmission Date: 20201103
  Serious: Yes (Hospitalization)
  Sender: FDA-Public Use
  Company Number: FR-ACCORD-192603

PATIENT
  Age: 90 Year
  Sex: Male

DRUGS (9)
  1. PARACETAMOL [Concomitant]
     Active Substance: ACETAMINOPHEN
  2. GEMCITABINE/GEMCITABINE HYDROCHLORIDE [Suspect]
     Active Substance: GEMCITABINE\GEMCITABINE HYDROCHLORIDE
     Indication: INTRADUCTAL PAPILLARY MUCINOUS NEOPLASM
     Route: 042
     Dates: start: 20180816
  3. LERCANIDIPINE [Concomitant]
     Active Substance: LERCANIDIPINE
  4. SPIRONOLACTONE. [Concomitant]
     Active Substance: SPIRONOLACTONE
  5. LEVEMIR [Concomitant]
     Active Substance: INSULIN DETEMIR
  6. CREON [Concomitant]
     Active Substance: PANCRELIPASE AMYLASE\PANCRELIPASE LIPASE\PANCRELIPASE PROTEASE
     Dosage: STRENGTH: 25 000 U
  7. LOSARTAN. [Concomitant]
     Active Substance: LOSARTAN
  8. DIFFU K [Concomitant]
     Active Substance: POTASSIUM CHLORIDE
  9. UVEDOSE [Concomitant]
     Active Substance: CHOLECALCIFEROL

REACTIONS (1)
  - Atrial fibrillation [Not Recovered/Not Resolved]

NARRATIVE: CASE EVENT DATE: 201812
